FAERS Safety Report 6165402-4 (Version None)
Quarter: 2009Q2

REPORT INFORMATION
  Report Type: 
  Country: None (occurrence: None)
  Receive Date: 20090423
  Receipt Date: 20090414
  Transmission Date: 20091009
  Serious: Yes (Hospitalization)
  Sender: FDA-Public Use
  Company Number: IT-PFIZER INC-2009198279

PATIENT

DRUGS (1)
  1. SUNITINIB MALATE [Suspect]

REACTIONS (2)
  - HAEMATURIA [None]
  - VENA CAVA EMBOLISM [None]
